FAERS Safety Report 11360049 (Version 2)
Quarter: 2015Q3

REPORT INFORMATION
  Report Type: Report from Study
  Country: US (occurrence: US)
  Receive Date: 20150810
  Receipt Date: 20150923
  Transmission Date: 20151125
  Serious: Yes (Hospitalization, Other)
  Sender: FDA-Public Use
  Company Number: US-GILEAD-2015-0166700

PATIENT
  Age: 68 Year
  Sex: Female

DRUGS (22)
  1. AMBRISENTAN [Suspect]
     Active Substance: AMBRISENTAN
     Indication: SLEEP APNOEA SYNDROME
  2. ONDANSETRON [Concomitant]
     Active Substance: ONDANSETRON
  3. ACETAMINOPHEN. [Concomitant]
     Active Substance: ACETAMINOPHEN
  4. MODAFINIL. [Concomitant]
     Active Substance: MODAFINIL
  5. AMBRISENTAN [Suspect]
     Active Substance: AMBRISENTAN
     Indication: PULMONARY ARTERIAL HYPERTENSION
     Dosage: 10 MG, QD
     Route: 065
     Dates: start: 20141217
  6. FLUTICASONE PROPIONATE. [Concomitant]
     Active Substance: FLUTICASONE PROPIONATE
  7. BUSPIRONE [Concomitant]
     Active Substance: BUSPIRONE HYDROCHLORIDE
  8. MVI                                /01825701/ [Concomitant]
     Active Substance: VITAMINS
  9. LANSOPRAZOLE. [Concomitant]
     Active Substance: LANSOPRAZOLE
  10. AMBRISENTAN [Suspect]
     Active Substance: AMBRISENTAN
     Indication: OBESITY
  11. BROVANA [Concomitant]
     Active Substance: ARFORMOTEROL TARTRATE
  12. PHENOL. [Concomitant]
     Active Substance: PHENOL
  13. DICLOFENAC [Concomitant]
     Active Substance: DICLOFENAC
  14. SALINE [Concomitant]
     Active Substance: SODIUM CHLORIDE
  15. GUAIFENESIN. [Concomitant]
     Active Substance: GUAIFENESIN
  16. LACTOBACILLUS [Concomitant]
     Active Substance: LACTOBACILLUS ACIDOPHILUS
  17. ENOXAPARIN [Concomitant]
     Active Substance: ENOXAPARIN
  18. LATANOPROST. [Concomitant]
     Active Substance: LATANOPROST
  19. SILDENAFIL. [Suspect]
     Active Substance: SILDENAFIL
     Indication: PRODUCT USED FOR UNKNOWN INDICATION
     Route: 065
  20. METOCLOPRAMIDE. [Concomitant]
     Active Substance: METOCLOPRAMIDE
  21. FUROSEMIDE. [Concomitant]
     Active Substance: FUROSEMIDE
  22. SOMBRA [Concomitant]
     Active Substance: CAMPHOR (SYNTHETIC)\MENTHOL

REACTIONS (1)
  - Dyspnoea [Not Recovered/Not Resolved]
